FAERS Safety Report 12745432 (Version 2)
Quarter: 2016Q4

REPORT INFORMATION
  Report Type: Spontaneous
  Country: US (occurrence: US)
  Receive Date: 20160915
  Receipt Date: 20161025
  Transmission Date: 20170207
  Serious: Yes (Other)
  Sender: FDA-Public Use
  Company Number: US-PFIZER INC-2016430241

PATIENT
  Age: 69 Year
  Sex: Male
  Weight: 77.98 kg

DRUGS (3)
  1. LYRICA [Suspect]
     Active Substance: PREGABALIN
     Indication: NERVE INJURY
     Dosage: 300 MG, 2X/DAY
     Dates: start: 2015, end: 201609
  2. LYRICA [Suspect]
     Active Substance: PREGABALIN
     Dosage: 200 MG, UNK
  3. XARELTO [Concomitant]
     Active Substance: RIVAROXABAN
     Indication: ANTICOAGULANT THERAPY
     Dosage: 20 MG, 1X/DAY
     Dates: start: 201509

REACTIONS (9)
  - Road traffic accident [Unknown]
  - Intentional product misuse [Unknown]
  - Secretion discharge [Unknown]
  - Feeding disorder [Unknown]
  - Insomnia [Not Recovered/Not Resolved]
  - Peripheral artery thrombosis [Unknown]
  - Gait disturbance [Unknown]
  - Drug dependence [Unknown]
  - Joint range of motion decreased [Unknown]

NARRATIVE: CASE EVENT DATE: 2015
